FAERS Safety Report 9365966 (Version 2)
Quarter: 2013Q2

REPORT INFORMATION
  Report Type: Spontaneous
  Country: US (occurrence: US)
  Receive Date: 20130625
  Receipt Date: 20130625
  Transmission Date: 20140414
  Serious: No
  Sender: FDA-Public Use
  Company Number: US-MYLANLABS-2013S1000760

PATIENT
  Age: 61 Year
  Sex: Male
  Weight: 99.79 kg

DRUGS (7)
  1. PRAZOSIN HYDROCHLORIDE CAPSULES, USP [Suspect]
     Indication: POST-TRAUMATIC STRESS DISORDER
     Route: 048
     Dates: start: 20130102, end: 20130107
  2. PRAZOSIN HYDROCHLORIDE CAPSULES, USP [Suspect]
     Indication: OFF LABEL USE
     Route: 048
     Dates: start: 20130102, end: 20130107
  3. DEPAKOTE [Concomitant]
     Indication: BIPOLAR DISORDER
  4. LITHIUM [Concomitant]
     Indication: BIPOLAR DISORDER
  5. SYNTHROID [Concomitant]
  6. ALLOPURINOL [Concomitant]
     Indication: GOUT
  7. INDOCIN [Concomitant]
     Indication: GOUT

REACTIONS (6)
  - Anger [Recovered/Resolved]
  - Hostility [Recovered/Resolved]
  - Depression [Recovered/Resolved]
  - Fatigue [Not Recovered/Not Resolved]
  - Hypotension [Not Recovered/Not Resolved]
  - Apathy [Not Recovered/Not Resolved]
